FAERS Safety Report 21813566 (Version 1)
Quarter: 2023Q1

REPORT INFORMATION
  Report Type: Spontaneous
  Country: AU (occurrence: AU)
  Receive Date: 20230103
  Receipt Date: 20230103
  Transmission Date: 20230417
  Serious: Yes (Disabling)
  Sender: FDA-Public Use
  Company Number: AU-STRIDES ARCOLAB LIMITED-2023SP000021

PATIENT
  Age: 18 Year
  Sex: Male

DRUGS (4)
  1. DOXYCYCLINE [Suspect]
     Active Substance: DOXYCYCLINE
     Indication: Epidermolysis bullosa
     Dosage: 100 MILLIGRAM PER DAY
     Route: 048
  2. DOXYCYCLINE [Suspect]
     Active Substance: DOXYCYCLINE
     Dosage: UNK (EVERY SECOND DAY)
     Route: 065
  3. THALIDOMIDE [Suspect]
     Active Substance: THALIDOMIDE
     Indication: Epidermolysis bullosa
     Dosage: 50 MILLIGRAM PER DAY
     Route: 048
  4. THALIDOMIDE [Suspect]
     Active Substance: THALIDOMIDE
     Dosage: UNK (EVERY SECOND DAY)
     Route: 065

REACTIONS (3)
  - Epidermolysis bullosa [Recovered/Resolved]
  - Rebound effect [Unknown]
  - Off label use [Unknown]
